FAERS Safety Report 4427847-X (Version None)
Quarter: 2004Q3

REPORT INFORMATION
  Report Type: 
  Country: None (occurrence: None)
  Receive Date: 20040816
  Receipt Date: 20040802
  Transmission Date: 20050211
  Serious: Yes (Other)
  Sender: FDA-Public Use
  Company Number: 2004049093

PATIENT
  Sex: Male

DRUGS (1)
  1. VIAGRA [Suspect]
     Indication: PENIS DISORDER
     Dosage: 100 MG (100 MG, AS NEEDED), ORAL
     Route: 048

REACTIONS (3)
  - HIP ARTHROPLASTY [None]
  - JOINT ARTHROPLASTY [None]
  - KNEE ARTHROPLASTY [None]
